FAERS Safety Report 5397955-8 (Version None)
Quarter: 2007Q3

REPORT INFORMATION
  Report Type: 
  Country: None (occurrence: None)
  Receive Date: 20070724
  Receipt Date: 20070717
  Transmission Date: 20080115
  Serious: Yes (Hospitalization)
  Sender: FDA-Public Use
  Company Number: 2007BI007114

PATIENT
  Age: 53 Year
  Sex: Female

DRUGS (1)
  1. AVONEX [Suspect]
     Indication: DRUG USE FOR UNKNOWN INDICATION
     Dosage: 30 UG; QW; IM
     Route: 030
     Dates: start: 20060805

REACTIONS (5)
  - ASTHENIA [None]
  - INTERVERTEBRAL DISC DEGENERATION [None]
  - NAUSEA [None]
  - PAIN [None]
  - PYREXIA [None]
